FAERS Safety Report 20703331 (Version 2)
Quarter: 2022Q2

REPORT INFORMATION
  Report Type: Spontaneous
  Country: CA (occurrence: CA)
  Receive Date: 20220413
  Receipt Date: 20220520
  Transmission Date: 20220721
  Serious: Yes (Other)
  Sender: FDA-Public Use
  Company Number: CA-CELLTRION INC.-2022CA004476

PATIENT

DRUGS (2)
  1. INFLECTRA [Suspect]
     Active Substance: INFLIXIMAB-DYYB
     Indication: Colitis ulcerative
     Dosage: 415 MG, Q 0, 2 AND 6, THEN EVERY 8 WEEKS
     Route: 042
     Dates: start: 20210511
  2. SULFASALAZINE [Suspect]
     Active Substance: SULFASALAZINE
     Indication: Colitis ulcerative
     Dosage: 1 DF DOSAGE NOT AVAILABLE
     Route: 065

REACTIONS (1)
  - Nephrolithiasis [Not Recovered/Not Resolved]
